FAERS Safety Report 5059731-5 (Version None)
Quarter: 2006Q3

REPORT INFORMATION
  Report Type: 
  Country: None (occurrence: None)
  Receive Date: 20060724
  Receipt Date: 20051117
  Transmission Date: 20061208
  Serious: Yes (Other)
  Sender: FDA-Public Use
  Company Number: US-MERCK-0511USA03093

PATIENT
  Age: 58 Year
  Sex: Female

DRUGS (2)
  1. FOSAMAX [Suspect]
     Indication: OSTEOPOROSIS
     Route: 048
     Dates: start: 19990101
  2. [THERAPY UNSPECIFIED] [Concomitant]
     Route: 065

REACTIONS (6)
  - DENTAL FISTULA [None]
  - IMPAIRED HEALING [None]
  - OSTEOMYELITIS [None]
  - OSTEONECROSIS [None]
  - PERIODONTITIS [None]
  - TREATMENT NONCOMPLIANCE [None]
